FAERS Safety Report 16441212 (Version 2)
Quarter: 2019Q3

REPORT INFORMATION
  Report Type: Spontaneous
  Country: CH (occurrence: CH)
  Receive Date: 20190617
  Receipt Date: 20190723
  Transmission Date: 20191004
  Serious: Yes (Other)
  Sender: FDA-Public Use
  Company Number: CH-SA-2019SA129043

PATIENT
  Age: 25 Year
  Sex: Female

DRUGS (3)
  1. LEMTRADA [Suspect]
     Active Substance: ALEMTUZUMAB
     Dosage: UNK
     Route: 041
     Dates: start: 20160316, end: 20160318
  2. LEMTRADA [Suspect]
     Active Substance: ALEMTUZUMAB
     Indication: RELAPSING-REMITTING MULTIPLE SCLEROSIS
     Dosage: UNK
     Route: 041
     Dates: start: 20170906, end: 20170909
  3. LEMTRADA [Suspect]
     Active Substance: ALEMTUZUMAB
     Dosage: UNK
     Route: 041
     Dates: start: 20150519, end: 20150523

REACTIONS (5)
  - Multiple sclerosis [Not Recovered/Not Resolved]
  - Depression [Unknown]
  - Autoimmune thyroiditis [Unknown]
  - Cerebral atrophy [Unknown]
  - Cervix carcinoma stage 0 [Unknown]

NARRATIVE: CASE EVENT DATE: 201708
